FAERS Safety Report 12771180 (Version 1)
Quarter: 2016Q3

REPORT INFORMATION
  Report Type: Spontaneous
  Country: CA (occurrence: CA)
  Receive Date: 20160922
  Receipt Date: 20160922
  Transmission Date: 20161109
  Serious: Yes (Death)
  Sender: FDA-Public Use
  Company Number: CA-PFIZER INC-2016439868

PATIENT
  Sex: Female

DRUGS (1)
  1. ZYVOXAM [Suspect]
     Active Substance: LINEZOLID

REACTIONS (1)
  - Leukaemia [Fatal]
